FAERS Safety Report 5674661-3 (Version None)
Quarter: 2008Q1

REPORT INFORMATION
  Report Type: 
  Country: None (occurrence: None)
  Receive Date: 20080320
  Receipt Date: 20080317
  Transmission Date: 20080703
  Serious: Yes (Other)
  Sender: FDA-Public Use
  Company Number: A0715607A

PATIENT
  Age: 76 Year
  Sex: Female
  Weight: 51 kg

DRUGS (4)
  1. ROSIGLITAZONE [Suspect]
     Dosage: 8MG PER DAY
     Route: 048
     Dates: start: 20070302, end: 20080201
  2. PLACEBO [Suspect]
     Route: 048
     Dates: start: 20080202, end: 20080314
  3. GALANTAMINE [Concomitant]
     Dosage: 16MG PER DAY
     Route: 048
     Dates: start: 20060202
  4. SERTRALINE [Concomitant]
     Indication: DEPRESSION
     Dosage: 50MG PER DAY
     Route: 048
     Dates: start: 19971021

REACTIONS (2)
  - MYALGIA [None]
  - MYOCARDIAL INFARCTION [None]
